FAERS Safety Report 8154921-7 (Version None)
Quarter: 2012Q1

REPORT INFORMATION
  Report Type: 
  Country: None (occurrence: None)
  Receive Date: 20120221
  Receipt Date: 20120216
  Transmission Date: 20120608
  Serious: Yes (Other)
  Sender: FDA-Public Use
  Company Number: PHEH2011US03864

PATIENT
  Sex: Female

DRUGS (1)
  1. GILENYA [Suspect]
     Indication: MULTIPLE SCLEROSIS
     Dosage: 0.5 MG, DAILY
     Route: 048
     Dates: start: 20110901, end: 20120216

REACTIONS (6)
  - CENTRAL NERVOUS SYSTEM LESION [None]
  - DYSPEPSIA [None]
  - MUSCULAR WEAKNESS [None]
  - SINUSITIS [None]
  - DIZZINESS [None]
  - MULTIPLE SCLEROSIS RELAPSE [None]
